FAERS Safety Report 7471583-2 (Version None)
Quarter: 2011Q2

REPORT INFORMATION
  Report Type: 
  Country: None (occurrence: None)
  Receive Date: 20110511
  Receipt Date: 20110426
  Transmission Date: 20111010
  Serious: Yes (Death)
  Sender: FDA-Public Use
  Company Number: US-BAYER-201031063NA

PATIENT
  Age: 18 Year
  Sex: Female
  Weight: 147 kg

DRUGS (9)
  1. PREDNISONE [Concomitant]
  2. LISINOPRIL [Concomitant]
     Indication: HYPERTENSION
     Dates: start: 20070801
  3. LEVAQUIN [Concomitant]
     Indication: BRONCHITIS
     Dates: start: 20080604
  4. ROBITUSSIN AC [CODEINE PHOSPHATE,GUAIFENESIN] [Concomitant]
     Indication: COUGH
     Route: 048
     Dates: start: 20080604
  5. ALBUTEROL [Concomitant]
     Dosage: EVERY 4-6 HRS
  6. YAZ [Suspect]
     Indication: MENSTRUATION IRREGULAR
     Route: 048
     Dates: start: 20070801, end: 20080601
  7. GLUCOPHAGE [Concomitant]
     Indication: GLUCOSE TOLERANCE IMPAIRED
     Route: 048
  8. AUGMENTIN [Concomitant]
     Dates: start: 20080515
  9. LEVAQUIN [Concomitant]
     Indication: PNEUMONIA

REACTIONS (3)
  - DEEP VEIN THROMBOSIS [None]
  - ACUTE RESPIRATORY FAILURE [None]
  - PULMONARY EMBOLISM [None]
